FAERS Safety Report 12648504 (Version 1)
Quarter: 2016Q3

REPORT INFORMATION
  Report Type: Spontaneous
  Country: CN (occurrence: CN)
  Receive Date: 20160812
  Receipt Date: 20160812
  Transmission Date: 20161109
  Serious: Yes (Other)
  Sender: FDA-Public Use
  Company Number: CN-BAYER-2016-150988

PATIENT
  Age: 62 Year
  Sex: Male
  Weight: 110 kg

DRUGS (5)
  1. AVANDIA [Suspect]
     Active Substance: ROSIGLITAZONE MALEATE
     Indication: GLUCOSE TOLERANCE IMPAIRED
     Dosage: 1 DF, QD
     Dates: end: 2009
  2. GLUCOBAY [Suspect]
     Active Substance: ACARBOSE
     Indication: GLUCOSE TOLERANCE IMPAIRED
     Dosage: 1 DF, QD
     Route: 048
     Dates: start: 20090101, end: 20090201
  3. AVANDIA [Suspect]
     Active Substance: ROSIGLITAZONE MALEATE
     Indication: GLUCOSE TOLERANCE IMPAIRED
     Dosage: 1 DF, QD
     Route: 048
     Dates: start: 20160101, end: 20160201
  4. AVANDIA [Suspect]
     Active Substance: ROSIGLITAZONE MALEATE
     Indication: GLUCOSE TOLERANCE IMPAIRED
     Dosage: 1 DF, QD
     Dates: start: 2006
  5. GLUCOPHAGE [Suspect]
     Active Substance: METFORMIN HYDROCHLORIDE
     Indication: GLUCOSE TOLERANCE IMPAIRED
     Dosage: 1 DF, BID
     Route: 048
     Dates: start: 20160201, end: 20160401

REACTIONS (4)
  - Blood glucose increased [Unknown]
  - Weight increased [Unknown]
  - Chest pain [Unknown]
  - Myocardial ischaemia [Unknown]

NARRATIVE: CASE EVENT DATE: 20160301
